FAERS Safety Report 23760545 (Version 2)
Quarter: 2024Q2

REPORT INFORMATION
  Report Type: Report from Study
  Country: JP (occurrence: JP)
  Receive Date: 20240419
  Receipt Date: 20240621
  Transmission Date: 20240715
  Serious: Yes (Death, Hospitalization, Other)
  Sender: FDA-Public Use
  Company Number: JP-VIIV HEALTHCARE LIMITED-A20017641

PATIENT

DRUGS (17)
  1. ABACAVIR SULFATE [Suspect]
     Active Substance: ABACAVIR SULFATE
     Indication: HIV infection
     Dosage: 600 MG, 1D
     Route: 048
     Dates: start: 20000619, end: 20110925
  2. MARAVIROC [Suspect]
     Active Substance: MARAVIROC
     Indication: HIV infection
     Dosage: 300 MG, 1D
     Route: 048
     Dates: start: 20110926, end: 20231228
  3. TIVICAY [Suspect]
     Active Substance: DOLUTEGRAVIR SODIUM
     Indication: HIV infection
     Dosage: 1 DF, QD
     Dates: start: 20220603, end: 20231228
  4. ZERIT [Suspect]
     Active Substance: STAVUDINE
     Indication: HIV infection
     Dosage: 80 MG, 1D
     Route: 048
     Dates: start: 19971020, end: 20061022
  5. VIDEX [Suspect]
     Active Substance: DIDANOSINE
     Indication: HIV infection
     Dosage: 300 MG, 1D
     Route: 048
     Dates: start: 20000619, end: 20010423
  6. EFAVIRENZ [Suspect]
     Active Substance: EFAVIRENZ
     Indication: HIV infection
     Dosage: 600 MG, 1D
     Route: 048
     Dates: start: 20000619, end: 20020721
  7. EPIVIR [Concomitant]
     Active Substance: LAMIVUDINE
     Indication: HIV infection
     Dosage: 300 MG, 1D
     Route: 048
     Dates: start: 19971020, end: 20000619
  8. VIRACEPT [Concomitant]
     Active Substance: NELFINAVIR MESYLATE
     Indication: HIV infection
     Dosage: 1500 MG, 1D
     Route: 048
     Dates: start: 19970728, end: 19980420
  9. VIRACEPT [Concomitant]
     Active Substance: NELFINAVIR MESYLATE
     Dosage: 2250 MG, 1D
     Route: 048
     Dates: start: 19980420, end: 19990426
  10. VIRACEPT [Concomitant]
     Active Substance: NELFINAVIR MESYLATE
     Dosage: 2500 MG, 1D
     Route: 048
     Dates: start: 19900426, end: 20000619
  11. CROSS EIGHT M [Concomitant]
     Active Substance: ANTIHEMOPHILIC FACTOR HUMAN
     Indication: Factor VIII deficiency
     Dosage: 1 KIU, 1D
     Route: 042
     Dates: start: 19991101
  12. PENTAMIDINE [Concomitant]
     Active Substance: PENTAMIDINE
     Indication: Pneumocystis jirovecii pneumonia
     Dosage: 300 MG, 1D
     Route: 055
     Dates: start: 19991101, end: 20001023
  13. PENTAMIDINE [Concomitant]
     Active Substance: PENTAMIDINE
     Dosage: UNK
     Route: 055
     Dates: start: 20010122, end: 20010219
  14. GENVOYA [Concomitant]
     Active Substance: COBICISTAT\ELVITEGRAVIR\EMTRICITABINE\TENOFOVIR ALAFENAMIDE FUMARATE
     Indication: HIV infection
     Dosage: 1 DF, QD
     Dates: start: 20170213, end: 20220602
  15. DARUNAVIR [Concomitant]
     Active Substance: DARUNAVIR
     Indication: HIV infection
     Dosage: 1 DF, QD
     Dates: start: 20110926, end: 20220602
  16. ELOCTATE [Concomitant]
     Active Substance: EFMOROCTOCOG ALFA
     Dosage: UNK
     Dates: start: 20191224, end: 20231228
  17. SYMTUZA [Concomitant]
     Active Substance: COBICISTAT\DARUNAVIR\EMTRICITABINE\TENOFOVIR ALAFENAMIDE
     Indication: HIV infection
     Dosage: 1 DF, QD
     Dates: start: 20220603, end: 20231228

REACTIONS (5)
  - Progressive multifocal leukoencephalopathy [Fatal]
  - Intracranial aneurysm [Not Recovered/Not Resolved]
  - Spinal compression fracture [Not Recovered/Not Resolved]
  - Osteoporosis [Not Recovered/Not Resolved]
  - Liver function test abnormal [Not Recovered/Not Resolved]

NARRATIVE: CASE EVENT DATE: 20001023
